FAERS Safety Report 9855397 (Version 4)
Quarter: 2014Q2

REPORT INFORMATION
  Report Type: Spontaneous
  Country: US (occurrence: US)
  Receive Date: 20140130
  Receipt Date: 20140430
  Transmission Date: 20141212
  Serious: Yes (Hospitalization)
  Sender: FDA-Public Use
  Company Number: US-JNJFOC-20131212513

PATIENT
  Age: 62 Year
  Sex: Male
  Weight: 136.99 kg

DRUGS (6)
  1. XARELTO [Suspect]
     Indication: CEREBROVASCULAR ACCIDENT PROPHYLAXIS
     Route: 048
     Dates: start: 20130521
  2. XARELTO [Suspect]
     Indication: ATRIAL FIBRILLATION
     Route: 048
     Dates: start: 20130521
  3. CELEBRIX [Concomitant]
     Indication: INFLAMMATION
     Route: 065
     Dates: end: 20130521
  4. BUPROPION XL [Concomitant]
     Indication: ANXIETY
     Dosage: STOPPED TODAY (UNSPECIFIED DATE)
     Route: 065
  5. GLUCOSAMINE [Concomitant]
     Indication: INFLAMMATION
     Dosage: STOPPED TODAY (UNSPECIFIED DATE)
     Route: 065
  6. MSM [Concomitant]
     Indication: INFLAMMATION
     Dosage: STOPPED TODAY (UNSPECIFIED DATE)
     Route: 065

REACTIONS (3)
  - Cardioversion [Unknown]
  - Sinus congestion [Not Recovered/Not Resolved]
  - Oropharyngeal pain [Not Recovered/Not Resolved]
